FAERS Safety Report 26183656 (Version 2)
Quarter: 2025Q4

REPORT INFORMATION
  Report Type: Report from Study
  Country: CA (occurrence: CA)
  Receive Date: 20251221
  Receipt Date: 20251226
  Transmission Date: 20260118
  Serious: No
  Sender: ABBVIE
  Company Number: CA-ABBVIE-6596594

PATIENT
  Sex: Male
  Weight: 68 kg

DRUGS (1)
  1. RINVOQ [Suspect]
     Active Substance: UPADACITINIB
     Indication: Crohn^s disease
     Dosage: LDD: 15 DEC 2025
     Route: 050

REACTIONS (1)
  - Defaecation urgency [Unknown]
